FAERS Safety Report 6662062-0 (Version None)
Quarter: 2010Q1

REPORT INFORMATION
  Report Type: 
  Country: None (occurrence: None)
  Receive Date: 20100331
  Receipt Date: 20100318
  Transmission Date: 20100710
  Serious: Yes (Other)
  Sender: FDA-Public Use
  Company Number: US-PFIZER INC-2010036004

PATIENT
  Sex: Male
  Weight: 102 kg

DRUGS (3)
  1. CHANTIX [Suspect]
     Indication: SMOKING CESSATION THERAPY
     Dosage: UNK
     Route: 048
     Dates: end: 20091101
  2. PRAVACHOL [Concomitant]
     Indication: BLOOD CHOLESTEROL INCREASED
     Dosage: UNK
  3. ZETIA [Concomitant]
     Dosage: UNK

REACTIONS (3)
  - BLOOD TESTOSTERONE DECREASED [None]
  - PARANOIA [None]
  - WEIGHT INCREASED [None]
